FAERS Safety Report 8487786-4 (Version None)
Quarter: 2012Q3

REPORT INFORMATION
  Report Type: 
  Country: None (occurrence: None)
  Receive Date: 20120705
  Receipt Date: 20120629
  Transmission Date: 20120928
  Serious: Yes (Other)
  Sender: FDA-Public Use
  Company Number: US-PFIZER INC-2012121711

PATIENT
  Sex: Male

DRUGS (21)
  1. ASPIRIN [Concomitant]
  2. TRICOR [Concomitant]
  3. AMBIEN [Concomitant]
  4. VITAMIN B-12 [Concomitant]
  5. LASIX [Concomitant]
  6. IMDUR [Concomitant]
  7. CRESTOR [Concomitant]
  8. TOPROL-XL [Concomitant]
  9. NIASPAN [Concomitant]
  10. VITAMIN B6 [Concomitant]
  11. LOVAZA [Concomitant]
  12. NITROGLYCERIN PRN [Concomitant]
  13. GLIPIZIDE [Concomitant]
  14. NORVASC [Suspect]
     Indication: CARDIAC DISORDER
     Dosage: 10 MG, DAILY
     Route: 048
  15. PLAVIX [Concomitant]
  16. FOLIC ACID [Concomitant]
  17. ALTACE [Concomitant]
  18. ULTRAM [Concomitant]
     Dosage: UNK
  19. RANEXA [Concomitant]
  20. NEXIUM [Concomitant]
  21. METFORMIN [Concomitant]

REACTIONS (1)
  - JOINT INJURY [None]
